FAERS Safety Report 5494173-X (Version None)
Quarter: 2007Q4

REPORT INFORMATION
  Report Type: 
  Country: None (occurrence: None)
  Receive Date: 20071023
  Receipt Date: 20071023
  Transmission Date: 20080405
  Serious: Yes (Hospitalization)
  Sender: FDA-Public Use
  Company Number: None

PATIENT
  Sex: Male
  Weight: 91.8 kg

DRUGS (2)
  1. LUPRON [Suspect]
     Indication: PROSTATE CANCER
     Dosage: 22.5 MG Q 3 MOS IM
     Route: 030
     Dates: start: 20070702
  2. LUPRON [Suspect]
     Indication: PROSTATE CANCER
     Dosage: 22.5 MG Q 3 MOS IM
     Route: 030
     Dates: start: 20070924

REACTIONS (2)
  - LOSS OF CONSCIOUSNESS [None]
  - ORTHOSTATIC HYPOTENSION [None]
